FAERS Safety Report 9397520 (Version 3)
Quarter: 2014Q2

REPORT INFORMATION
  Report Type: Spontaneous
  Country: US (occurrence: US)
  Receive Date: 20130712
  Receipt Date: 20140603
  Transmission Date: 20141212
  Serious: Yes (Other)
  Sender: FDA-Public Use
  Company Number: US-SANOFI-AVENTIS-2013SA070109

PATIENT
  Age: 53 Year
  Sex: Female

DRUGS (29)
  1. LANTUS SOLOSTAR [Suspect]
     Indication: DIABETES MELLITUS
     Dosage: DOSE:30 UNIT(S)
     Route: 058
     Dates: start: 2010
  2. LANTUS SOLOSTAR [Suspect]
     Indication: DIABETES MELLITUS
     Dosage: DOSE:22 UNIT(S)
     Route: 058
     Dates: start: 201305
  3. LANTUS SOLOSTAR [Suspect]
     Indication: DIABETES MELLITUS
     Dosage: DOSE:30 UNIT(S)
     Route: 058
     Dates: start: 2010
  4. LANTUS SOLOSTAR [Suspect]
     Indication: DIABETES MELLITUS
     Dosage: DOSE:30 UNIT(S)
     Route: 058
     Dates: start: 2010
  5. LANTUS SOLOSTAR [Suspect]
     Indication: DIABETES MELLITUS
     Dosage: DOSE:30 UNIT(S)
     Route: 058
     Dates: start: 2010
  6. LANTUS SOLOSTAR [Suspect]
     Indication: DIABETES MELLITUS
     Dosage: DOSE:30 UNIT(S)
     Route: 058
     Dates: start: 2010
  7. LANTUS SOLOSTAR [Suspect]
     Indication: DIABETES MELLITUS
     Dosage: DOSE:30 UNIT(S)
     Route: 058
     Dates: start: 2010
  8. LANTUS SOLOSTAR [Suspect]
     Indication: DIABETES MELLITUS
     Dosage: DOSE:30 UNIT(S)
     Route: 058
     Dates: start: 2010
  9. LANTUS SOLOSTAR [Suspect]
     Indication: DIABETES MELLITUS
     Dosage: DOSE:30 UNIT(S)
     Route: 058
     Dates: start: 2010
  10. LANTUS SOLOSTAR [Suspect]
     Indication: DIABETES MELLITUS
     Dosage: DOSE:22 UNIT(S)
     Route: 058
     Dates: start: 201305
  11. LANTUS SOLOSTAR [Suspect]
     Indication: DIABETES MELLITUS
     Dosage: DOSE:22 UNIT(S)
     Route: 058
     Dates: start: 201305
  12. LANTUS SOLOSTAR [Suspect]
     Indication: DIABETES MELLITUS
     Dosage: DOSE:22 UNIT(S)
     Route: 058
     Dates: start: 201305
  13. LANTUS SOLOSTAR [Suspect]
     Indication: DIABETES MELLITUS
     Dosage: DOSE:22 UNIT(S)
     Route: 058
     Dates: start: 201305
  14. LANTUS SOLOSTAR [Suspect]
     Indication: DIABETES MELLITUS
     Dosage: DOSE:22 UNIT(S)
     Route: 058
     Dates: start: 201305
  15. LANTUS SOLOSTAR [Suspect]
     Indication: DIABETES MELLITUS
     Dosage: DOSE:22 UNIT(S)
     Route: 058
     Dates: start: 201305
  16. LANTUS SOLOSTAR [Suspect]
     Indication: DIABETES MELLITUS
     Dosage: DOSE:22 UNIT(S)
     Route: 058
     Dates: start: 201305
  17. LANTUS SOLOSTAR [Suspect]
     Indication: DIABETES MELLITUS
     Dosage: DOSE:22 UNIT(S)
     Route: 058
     Dates: start: 201305
  18. SOLOSTAR [Concomitant]
     Indication: DEVICE THERAPY
     Dates: start: 2010
  19. SOLOSTAR [Concomitant]
     Indication: DEVICE THERAPY
     Dates: start: 201305
  20. FAMOTIDINE [Concomitant]
     Indication: GASTROINTESTINAL DISORDER
     Dates: start: 20101127
  21. MYFORTIC [Concomitant]
     Indication: RENAL TRANSPLANT
     Dates: start: 20101127
  22. PREDNISONE [Concomitant]
     Indication: RENAL TRANSPLANT
     Dates: start: 20101127
  23. PROGRAF [Concomitant]
     Indication: RENAL TRANSPLANT
     Dates: start: 20101127
  24. LISINOPRIL [Concomitant]
     Dates: start: 20101127
  25. FLUDROCORTISONE [Concomitant]
     Indication: HYPERTENSION
     Dates: start: 20101127
  26. LIPITOR [Concomitant]
     Indication: BLOOD CHOLESTEROL
     Dates: start: 20101127
  27. SUMATRIPTAN [Concomitant]
     Indication: PAIN
     Dates: start: 20101127
  28. ASPIRIN [Concomitant]
     Indication: CARDIAC DISORDER
     Dates: start: 1999
  29. IMODIUM [Concomitant]
     Dates: start: 20101127

REACTIONS (2)
  - Renal disorder [Unknown]
  - Blood glucose increased [Unknown]
